FAERS Safety Report 5220960-9 (Version None)
Quarter: 2007Q1

REPORT INFORMATION
  Report Type: 
  Country: None (occurrence: None)
  Receive Date: 20070123
  Receipt Date: 20070109
  Transmission Date: 20070707
  Serious: Yes (Hospitalization)
  Sender: FDA-Public Use
  Company Number: 2007RR-05169

PATIENT
  Age: 56 Year
  Sex: Male

DRUGS (18)
  1. FLUCONAZOLE [Suspect]
     Indication: PNEUMONIA
  2. CYCLOSPORINE [Suspect]
     Indication: HEART TRANSPLANT
     Dosage: 250 MG,QD; 200 MG, QD, 150 MG, QD; 75 MG, QD
  3. AZATHIOPRINE [Concomitant]
  4. STEROIDS [Concomitant]
  5. EVEROLIMUS (EVEROLIMUS) [Suspect]
     Dosage: 1.5 MG, BID,
  6. METHYLPREDNISOLONE 16MG TAB [Concomitant]
  7. CAPTROPIL (CAPTOPRIL) [Concomitant]
  8. FUROSEMIDE [Concomitant]
  9. PRAVASTATIN [Concomitant]
  10. ASPIRIN [Concomitant]
  11. RAMIPRIL [Concomitant]
  12. ATENOLOL [Concomitant]
  13. TICLOPIDINE (TICLOPIDINE) [Concomitant]
  14. ATORVASTATIN CALCIUM [Concomitant]
  15. NIMESULIDE [Concomitant]
  16. CIPROFLOXACIN HCL [Concomitant]
  17. AZATHIOPRINE [Concomitant]
  18. STEROIDS [Concomitant]

REACTIONS (4)
  - DRUG INTERACTION [None]
  - LEUKOPENIA [None]
  - PNEUMONIA [None]
  - RENAL IMPAIRMENT [None]
